FAERS Safety Report 6634146-4 (Version None)
Quarter: 2010Q1

REPORT INFORMATION
  Report Type: 
  Country: None (occurrence: None)
  Receive Date: 20100315
  Receipt Date: 20100305
  Transmission Date: 20100710
  Serious: Yes (Hospitalization)
  Sender: FDA-Public Use
  Company Number: FR-BRISTOL-MYERS SQUIBB COMPANY-15014145

PATIENT
  Age: 69 Year
  Sex: Male

DRUGS (2)
  1. ERBITUX [Suspect]
     Indication: RECTAL CANCER METASTATIC
     Route: 042
     Dates: start: 20100304, end: 20100305
  2. ANTIHISTAMINE NOS [Concomitant]
     Indication: PREMEDICATION
     Dates: start: 20100303, end: 20100303

REACTIONS (3)
  - CHILLS [None]
  - EPISTAXIS [None]
  - THROMBOCYTOPENIA [None]
